FAERS Safety Report 7694104-8 (Version None)
Quarter: 2011Q3

REPORT INFORMATION
  Report Type: 
  Country: None (occurrence: None)
  Receive Date: 20110816
  Receipt Date: 20100611
  Transmission Date: 20111222
  Serious: Yes (Hospitalization)
  Sender: FDA-Public Use
  Company Number: GER/SPN/10/0013703

PATIENT
  Age: 50 Year
  Sex: Female

DRUGS (4)
  1. CLAVULANATE POTASSIUM [Concomitant]
  2. EPINEPHRINE [Suspect]
     Indication: PRODUCT USED FOR UNKNOWN INDICATION
     Dosage: SUBCUTANEOUS
     Route: 058
     Dates: start: 20050601
  3. AMOXICILLIN [Concomitant]
  4. IBUPROFEN [Suspect]
     Indication: ACUTE SINUSITIS
     Dates: start: 20050601

REACTIONS (6)
  - KOUNIS SYNDROME [None]
  - VENTRICULAR TACHYCARDIA [None]
  - HYPOTENSION [None]
  - VASOSPASM [None]
  - MYOCARDIAL INFARCTION [None]
  - HYPERSENSITIVITY [None]
